FAERS Safety Report 11460192 (Version 3)
Quarter: 2015Q3

REPORT INFORMATION
  Report Type: Spontaneous
  Country: US (occurrence: None)
  Receive Date: 20150904
  Receipt Date: 20150923
  Transmission Date: 20151125
  Serious: Yes (Death, Hospitalization, Other)
  Sender: FDA-Public Use
  Company Number: ADR-2015-01601

PATIENT
  Age: 42 Year
  Sex: Male

DRUGS (2)
  1. INTRATHECAL MORPHINE [Suspect]
     Active Substance: MORPHINE
  2. COMPOUNDED BACLOFEN INTRATHECAL [Suspect]
     Active Substance: BACLOFEN
     Indication: PAIN

REACTIONS (4)
  - Device breakage [None]
  - Cough [None]
  - Death [None]
  - Device leakage [None]
